FAERS Safety Report 10561006 (Version 4)
Quarter: 2015Q1

REPORT INFORMATION
  Report Type: Report from Study
  Country: CA (occurrence: CA)
  Receive Date: 20141103
  Receipt Date: 20150302
  Transmission Date: 20150720
  Serious: Yes (Hospitalization, Other)
  Sender: FDA-Public Use
  Company Number: CA-ABBVIE-14P-028-1302375-00

PATIENT
  Age: 83 Year
  Sex: Male
  Weight: 85 kg

DRUGS (6)
  1. ATENOLOL. [Concomitant]
     Active Substance: ATENOLOL
     Indication: PRODUCT USED FOR UNKNOWN INDICATION
     Dosage: EVERY DAY
     Route: 048
  2. ADVAIR HFA [Concomitant]
     Active Substance: FLUTICASONE PROPIONATE\SALMETEROL XINAFOATE
     Indication: PRODUCT USED FOR UNKNOWN INDICATION
     Dosage: 500/50 (UNIT NOT SPECIFIED)
  3. SPIRIVA [Concomitant]
     Active Substance: TIOTROPIUM BROMIDE MONOHYDRATE
     Indication: PRODUCT USED FOR UNKNOWN INDICATION
     Dosage: EVERY DAY
  4. TECTA [Concomitant]
     Active Substance: PANTOPRAZOLE MAGNESIUM
     Indication: PRODUCT USED FOR UNKNOWN INDICATION
     Dosage: EVERY DAY
     Route: 048
  5. LUPRON DEPOT [Suspect]
     Active Substance: LEUPROLIDE ACETATE
     Indication: PROSTATE CANCER
     Route: 030
     Dates: start: 20111017, end: 20141014
  6. SALBUTAMOL [Concomitant]
     Active Substance: ALBUTEROL
     Indication: PRODUCT USED FOR UNKNOWN INDICATION
     Dosage: 4 TIMES A DAY AS NEEDED

REACTIONS (3)
  - Abdominal pain [Not Recovered/Not Resolved]
  - Abdominal mass [Not Recovered/Not Resolved]
  - Diffuse large B-cell lymphoma [Unknown]

NARRATIVE: CASE EVENT DATE: 20140909
